FAERS Safety Report 9235161 (Version 2)
Quarter: 2013Q2

REPORT INFORMATION
  Report Type: Spontaneous
  Country: US (occurrence: US)
  Receive Date: 20130416
  Receipt Date: 20130508
  Transmission Date: 20140414
  Serious: No
  Sender: FDA-Public Use
  Company Number: US-009507513-1304USA006428

PATIENT
  Age: 54 Year
  Sex: Female
  Weight: 77.98 kg

DRUGS (3)
  1. SAPHRIS [Suspect]
     Indication: BIPOLAR DISORDER
     Dosage: 10 MG, BID
     Route: 060
     Dates: start: 201210
  2. SAPHRIS [Suspect]
     Dosage: 5 MG, QD
     Route: 060
  3. LAMICTAL [Concomitant]

REACTIONS (1)
  - Oral mucosal blistering [Recovered/Resolved]
